FAERS Safety Report 9510559 (Version 2)
Quarter: 2013Q3

REPORT INFORMATION
  Report Type: Report from Study
  Country: JP (occurrence: JP)
  Receive Date: 20130909
  Receipt Date: 20130909
  Transmission Date: 20140515
  Serious: Yes (Death, Hospitalization)
  Sender: FDA-Public Use
  Company Number: JP-GENZYME-THYM-1003987

PATIENT
  Age: 66 Year
  Sex: Male
  Weight: 62 kg

DRUGS (7)
  1. THYMOGLOBULIN [Suspect]
     Indication: APLASTIC ANAEMIA
     Dosage: 225 MG, QD
     Route: 065
     Dates: start: 20130212, end: 20130216
  2. NEORAL [Concomitant]
     Indication: APLASTIC ANAEMIA
     Dosage: UNK
     Route: 065
     Dates: start: 20130116, end: 20130707
  3. BAKTAR [Concomitant]
     Indication: INFECTION PROPHYLAXIS
     Dosage: UNK
     Route: 065
     Dates: start: 20130116, end: 20130707
  4. NEXIUM [Concomitant]
     Indication: PROPHYLAXIS AGAINST GASTROINTESTINAL ULCER
     Dosage: UNK
     Route: 065
     Dates: start: 20130116, end: 20130707
  5. CRAVIT [Concomitant]
     Indication: INFECTION PROPHYLAXIS
     Dosage: UNK
     Route: 065
     Dates: start: 20130116, end: 20130707
  6. ITRIZOLE [Concomitant]
     Indication: INFECTION PROPHYLAXIS
     Dosage: UNK
     Route: 065
     Dates: start: 20130116, end: 20130707
  7. FAMVIR [Concomitant]
     Indication: INFECTION PROPHYLAXIS
     Dosage: UNK
     Route: 065
     Dates: start: 20130116, end: 20130707

REACTIONS (2)
  - Pseudomonal sepsis [Fatal]
  - Cytomegalovirus viraemia [Recovered/Resolved]
